FAERS Safety Report 18375301 (Version 2)
Quarter: 2020Q4

REPORT INFORMATION
  Report Type: Spontaneous
  Country: FR (occurrence: FR)
  Receive Date: 20201013
  Receipt Date: 20201022
  Transmission Date: 20210114
  Serious: Yes (Hospitalization)
  Sender: FDA-Public Use
  Company Number: FR-BAUSCH-BL-2020-028830

PATIENT
  Age: 64 Year
  Sex: Male

DRUGS (10)
  1. PANTOPRAZOLE [Suspect]
     Active Substance: PANTOPRAZOLE
     Indication: ULCER
     Dosage: 20 MG IN THE EVENING
     Route: 048
     Dates: start: 20200720
  2. PARACETAMOL [Suspect]
     Active Substance: ACETAMINOPHEN
     Indication: PRODUCT USED FOR UNKNOWN INDICATION
     Dosage: 3 G (MAXIMUM IF NECESSARY)
     Route: 065
     Dates: start: 20200720
  3. LOVENOX [Suspect]
     Active Substance: ENOXAPARIN SODIUM
     Indication: THROMBOSIS PROPHYLAXIS
     Dosage: 0.2 ML MORNING AND EVENING
     Route: 042
     Dates: start: 20200720
  4. CYMEVAN [Suspect]
     Active Substance: GANCICLOVIR
     Indication: CYTOMEGALOVIRUS INFECTION
     Dosage: 250 MG MORNING AND EVENING.
     Route: 042
     Dates: start: 20200711, end: 20200723
  5. LEDERFOLINE [Suspect]
     Active Substance: LEUCOVORIN CALCIUM
     Indication: PRODUCT USED FOR UNKNOWN INDICATION
     Dosage: 25 MG ON TUESDAY
     Route: 065
     Dates: start: 202007
  6. BACTRIM [Suspect]
     Active Substance: SULFAMETHOXAZOLE\TRIMETHOPRIM
     Indication: NEUTROPENIA
     Dosage: 800/160 MG, 1 TABLET ON MONDAYS, WEDNESDAYS AND FRIDAYS.
     Route: 048
     Dates: start: 20200708, end: 20200722
  7. CEFTRIAXONE. [Suspect]
     Active Substance: CEFTRIAXONE
     Indication: PRODUCT USED FOR UNKNOWN INDICATION
     Route: 042
     Dates: start: 20200506, end: 20200720
  8. DEXAMETHASONE. [Suspect]
     Active Substance: DEXAMETHASONE
     Indication: COVID-19 PNEUMONIA
     Dosage: 4 MG, EVERY 1 DAY
     Route: 042
     Dates: start: 20200721
  9. XATRAL [Suspect]
     Active Substance: ALFUZOSIN
     Indication: ANXIETY
     Dosage: 2.5 MG IN THE MORNING
     Route: 048
     Dates: start: 20200720
  10. LACTULOSE. [Suspect]
     Active Substance: LACTULOSE
     Indication: GASTROINTESTINAL MOTILITY DISORDER
     Dosage: 2 SACHETS IN THE MORNING
     Route: 065
     Dates: start: 20200720

REACTIONS (4)
  - Leukopenia [Not Recovered/Not Resolved]
  - Lymphopenia [Not Recovered/Not Resolved]
  - Neutropenia [Not Recovered/Not Resolved]
  - Thrombocytopenia [Not Recovered/Not Resolved]

NARRATIVE: CASE EVENT DATE: 20200716
